FAERS Safety Report 7074427-6 (Version None)
Quarter: 2010Q4

REPORT INFORMATION
  Report Type: 
  Country: None (occurrence: None)
  Receive Date: 20101029
  Receipt Date: 20100930
  Transmission Date: 20110411
  Serious: Yes (Hospitalization)
  Sender: FDA-Public Use
  Company Number: JP-ASTRAZENECA-2010SE44977

PATIENT
  Age: 70 Year
  Sex: Male

DRUGS (3)
  1. MEROPEN [Suspect]
     Indication: FEBRILE NEUTROPENIA
     Route: 042
     Dates: start: 20100917, end: 20100917
  2. DOXAZOSIN MESYLATE [Concomitant]
  3. URINORM [Concomitant]

REACTIONS (3)
  - ANAPHYLACTIC SHOCK [None]
  - BLOOD PRESSURE DECREASED [None]
  - URTICARIA [None]
